FAERS Safety Report 19498539 (Version 6)
Quarter: 2021Q4

REPORT INFORMATION
  Report Type: Report from Study
  Country: CA (occurrence: CA)
  Receive Date: 20210706
  Receipt Date: 20211220
  Transmission Date: 20220303
  Serious: Yes (Other)
  Sender: FDA-Public Use
  Company Number: NVSC2021CA026283

PATIENT
  Age: 72 Year
  Sex: Male

DRUGS (37)
  1. RITUXIMAB [Suspect]
     Active Substance: RITUXIMAB
     Indication: Glomerulonephritis membranous
     Dosage: 1000 MG
     Route: 042
     Dates: start: 20210122
  2. RITUXIMAB [Suspect]
     Active Substance: RITUXIMAB
     Dosage: 1000 MG (VIAL)
     Route: 042
  3. RITUXIMAB [Suspect]
     Active Substance: RITUXIMAB
     Dosage: UNK
     Route: 042
  4. IRBESARTAN [Suspect]
     Active Substance: IRBESARTAN
     Indication: Cardiac discomfort
     Dosage: 150 MG (TAKE 1 TABLET 1X/DAY IN THE MORNING (EQUVALENT TO AVAPRO)
     Route: 048
  5. PANTOPRAZOLE [Suspect]
     Active Substance: PANTOPRAZOLE
     Indication: Product used for unknown indication
     Dosage: 40 MG (TAKE 1 TABLET 2X/DAY 30 MINUTES BEFORE LUNCH AND DINNER)
     Route: 065
  6. DULOXETINE [Suspect]
     Active Substance: DULOXETINE
     Indication: Product used for unknown indication
     Dosage: 60 MG (TAKE 1 CAPSULE 1X/DAY WHILE EATING DINNER)
     Route: 048
  7. METHYLPREDNISOLONE [Suspect]
     Active Substance: METHYLPREDNISOLONE
     Indication: Product used for unknown indication
     Dosage: 100 MG (30 MIN)
     Route: 042
  8. SODIUM CHLORIDE [Concomitant]
     Active Substance: SODIUM CHLORIDE
     Indication: Product used for unknown indication
     Dosage: UNK
     Route: 065
  9. TYLENOL [Concomitant]
     Active Substance: ACETAMINOPHEN
     Indication: Product used for unknown indication
     Dosage: UNK
     Route: 065
  10. LASIX [Concomitant]
     Active Substance: FUROSEMIDE
     Indication: Product used for unknown indication
     Dosage: 20 MG
     Route: 048
  11. ELIQUIS [Concomitant]
     Active Substance: APIXABAN
     Indication: Coagulopathy
     Dosage: 5 MG (TAKE 1 TABLET 2X/DAY IN THE MORNING AND EVENING)
     Route: 048
  12. ATORVASTATIN [Concomitant]
     Active Substance: ATORVASTATIN
     Indication: Product used for unknown indication
     Dosage: 80 MG
     Route: 048
  13. METFORMIN [Concomitant]
     Active Substance: METFORMIN HYDROCHLORIDE
     Indication: Product used for unknown indication
     Dosage: 850 MG, TID
     Route: 048
  14. ALLOPURINOL [Concomitant]
     Active Substance: ALLOPURINOL
     Indication: Product used for unknown indication
     Dosage: 100 MG
     Route: 048
  15. PANTOPRAZOLE SODIUM [Concomitant]
     Active Substance: PANTOPRAZOLE SODIUM
     Indication: Product used for unknown indication
     Dosage: 40 MG
     Route: 048
  16. AVODART [Concomitant]
     Active Substance: DUTASTERIDE
     Indication: Product used for unknown indication
     Dosage: 0.5 MG (TAKE 1 CAPSULE 1X/DAY AT THE SAME HOUR EACH DAY)
     Route: 048
  17. AVODART [Concomitant]
     Active Substance: DUTASTERIDE
     Dosage: 0.5 MG (TAKE 1 CAPSULE 1X/DAY AT THE SAME HOUR EACH DAY)
     Route: 048
  18. AVODART [Concomitant]
     Active Substance: DUTASTERIDE
     Dosage: 0.5 MG (TAKE 1 CAPSULE 1X/DAY AT THE SAME HOUR EACH DAY)
     Route: 065
  19. DIPHENHYDRAMINE HYDROCHLORIDE [Concomitant]
     Active Substance: DIPHENHYDRAMINE HYDROCHLORIDE
     Indication: Product used for unknown indication
     Dosage: 50 MG (30 MIN PER INFUSION)
     Route: 048
  20. METHYLPREDNISOLONE [Concomitant]
     Active Substance: METHYLPREDNISOLONE
     Indication: Product used for unknown indication
     Dosage: 100 MG (30 MIN PRE INFUSION)
     Route: 042
  21. ACETAMINOPHEN [Concomitant]
     Active Substance: ACETAMINOPHEN
     Indication: Product used for unknown indication
     Dosage: 650 MG
     Route: 048
  22. DULOXETINE [Concomitant]
     Active Substance: DULOXETINE
     Indication: Product used for unknown indication
     Dosage: 60 MG
     Route: 048
  23. FENTANYL [Concomitant]
     Active Substance: FENTANYL
     Indication: Pain
     Dosage: 25 MCG/HOUR (PATCH) (APPLY 1 PATCH EVERY 3 DAYS WITH THE 12 MCG (TOTAL 37 MCG)- CHANGE SITE)
     Route: 062
  24. FENTANYL [Concomitant]
     Active Substance: FENTANYL
     Dosage: 12 MCG/HOUR (PATCH) (APPLY 1 PATCH EVERY 3 DAYS WITH THE 12 MCG (TOTAL 37 MCG)- CHANGE SITE)
     Route: 062
  25. FENTANYL [Concomitant]
     Active Substance: FENTANYL
     Dosage: 12 MCG/HOUR (PATCH) (APPLY 1 PATCH EVERY 3 DAYS- CHANGE SITE. AFTER 3-6 DAYS POSSIBLE TO APPLY 2 PAT
     Route: 062
  26. FENTANYL [Concomitant]
     Active Substance: FENTANYL
     Dosage: 25 MCG/HOUR (PATCH) (APPLY 1 PATCH EVERY 3 DAYS- CHANGE SITE)
     Route: 062
  27. FENTANYL [Concomitant]
     Active Substance: FENTANYL
     Dosage: 12 MCG/HOUR (PATCH) (APPLY 2 PATCHES EVERY 3 DAYS- CHANGE SITE)
     Route: 062
  28. FUROSEMIDE [Concomitant]
     Active Substance: FUROSEMIDE
     Indication: Product used for unknown indication
     Dosage: 40 MG (TAKE 1 TABLET 1X/DAY IF NEEDED IF EDEMA, CAN INCREASE TO 40 MG 2X/DAY IF NEEDED IF WEIGHT INC
     Route: 065
  29. FUROSEMIDE [Concomitant]
     Active Substance: FUROSEMIDE
     Dosage: 20 MG, BID (TAKE 1 TABLET 1X/DAY IN THE MORNING)
     Route: 065
     Dates: start: 202008
  30. ZOPICLONE [Concomitant]
     Active Substance: ZOPICLONE
     Indication: Insomnia
     Dosage: 7.5 MG (TAKE 1 TABLET 30 MINUTES BEFORE BEDTIME IF NEEDED)
     Route: 065
  31. JENTADUETO [Concomitant]
     Active Substance: LINAGLIPTIN\METFORMIN HYDROCHLORIDE
     Indication: Diabetes mellitus
     Dosage: 500+2.5 MG (TAKE 1 TABLET 2X/DAY AT LUNCH AND AT DINNER REGULARLY)
     Route: 065
  32. JAMP ATORVASTATIN [Concomitant]
     Indication: Blood cholesterol
     Dosage: 80 MG (TAKE 1 TABLET 1X/DAY AT THE SAME TIME OF THE DAY)
     Route: 048
  33. LIPITOR [Concomitant]
     Active Substance: ATORVASTATIN CALCIUM
     Indication: Product used for unknown indication
     Dosage: 20 MG
     Route: 065
  34. LIPITOR [Concomitant]
     Active Substance: ATORVASTATIN CALCIUM
     Dosage: 80 MG
     Route: 065
  35. CYMBALTA [Concomitant]
     Active Substance: DULOXETINE HYDROCHLORIDE
     Indication: Product used for unknown indication
     Dosage: 60 UNK
     Route: 065
  36. DILAUDID [Concomitant]
     Active Substance: HYDROMORPHONE HYDROCHLORIDE
     Indication: Product used for unknown indication
     Dosage: IF NEEDED
     Route: 065
  37. RITUXAN [Concomitant]
     Active Substance: RITUXIMAB
     Indication: Glomerulonephritis membranous
     Dosage: UNK
     Route: 065

REACTIONS (25)
  - Glomerulonephritis membranous [Unknown]
  - Polyneuropathy [Unknown]
  - Vena cava thrombosis [Unknown]
  - Pulmonary embolism [Unknown]
  - Feeling hot [Recovered/Resolved]
  - Antibody test abnormal [Not Recovered/Not Resolved]
  - Hypergammaglobulinaemia benign monoclonal [Unknown]
  - Osteoarthritis [Not Recovered/Not Resolved]
  - Incontinence [Unknown]
  - Weight decreased [Unknown]
  - Decreased appetite [Unknown]
  - Feeling abnormal [Unknown]
  - Blood glucose increased [Unknown]
  - Epistaxis [Recovered/Resolved]
  - Blood albumin decreased [Unknown]
  - Haematuria [Unknown]
  - Hypertension [Unknown]
  - Arthralgia [Not Recovered/Not Resolved]
  - Drug hypersensitivity [Unknown]
  - Diarrhoea [Unknown]
  - General physical health deterioration [Unknown]
  - Proteinuria [Unknown]
  - Oedema peripheral [Unknown]
  - Product use in unapproved indication [Unknown]
  - Drug ineffective [Unknown]

NARRATIVE: CASE EVENT DATE: 20200801
